FAERS Safety Report 9061578 (Version 1)
Quarter: 2013Q1

REPORT INFORMATION
  Report Type: Spontaneous
  Country: US (occurrence: None)
  Receive Date: 20130122
  Receipt Date: 20130122
  Transmission Date: 20140127
  Serious: Yes (Death, Other)
  Sender: FDA-Public Use
  Company Number: AUR-APL-2013-00542

PATIENT
  Age: 40 Year
  Sex: Male
  Weight: 65 kg

DRUGS (4)
  1. GABAPENTIN (GABAPENTIN) [Suspect]
     Indication: PRODUCT USED FOR UNKNOWN INDICATION
  2. AMITRIPTYLINE (AMITRIPTYLINE) [Suspect]
     Route: 048
  3. COCAINE [Suspect]
  4. ETHANOL [Suspect]

REACTIONS (14)
  - Toxicity to various agents [None]
  - Completed suicide [None]
  - Unresponsive to stimuli [None]
  - Heart rate increased [None]
  - Blood glucose increased [None]
  - Blood creatine phosphokinase increased [None]
  - Myoglobin blood increased [None]
  - Electrocardiogram QRS complex prolonged [None]
  - Ventricular tachycardia [None]
  - Drug ineffective [None]
  - Agitation [None]
  - Pain [None]
  - Convulsion [None]
  - Cardio-respiratory arrest [None]
